FAERS Safety Report 20937869 (Version 1)
Quarter: 2022Q2

REPORT INFORMATION
  Report Type: Spontaneous
  Country: PK (occurrence: PK)
  Receive Date: 20220609
  Receipt Date: 20220609
  Transmission Date: 20220720
  Serious: No
  Sender: FDA-Public Use
  Company Number: PK-LUPIN PHARMACEUTICALS INC.-2022-08276

PATIENT
  Age: 33 Year
  Sex: Male
  Weight: 164.1 kg

DRUGS (5)
  1. METFORMIN [Suspect]
     Active Substance: METFORMIN HYDROCHLORIDE
     Indication: Obesity
     Dosage: 1000 MG, BID
     Route: 048
  2. XENICAL [Suspect]
     Active Substance: ORLISTAT
     Indication: Obesity
     Dosage: 120 MG, TID
     Route: 048
  3. LIRAGLUTIDE [Suspect]
     Active Substance: LIRAGLUTIDE
     Indication: Obesity
     Dosage: UNK (0.6 MG/0.1ML THROUGH PEN INJECTOR IN THE FIRST WEEK)
     Route: 058
  4. LIRAGLUTIDE [Suspect]
     Active Substance: LIRAGLUTIDE
     Dosage: UNK (1.2 MG/0.1ML IN THE SECOND WEEK)
     Route: 058
  5. LIRAGLUTIDE [Suspect]
     Active Substance: LIRAGLUTIDE
     Dosage: UNK (1.8 MG/0.1ML FROM THE THIRD WEEK WITH FURTHER 0.6MG DOSE INCREASE/WEEK)
     Route: 058

REACTIONS (3)
  - Drug tolerance [Unknown]
  - Nausea [Recovered/Resolved]
  - Off label use [Unknown]
